FAERS Safety Report 4489213-0 (Version None)
Quarter: 2004Q4

REPORT INFORMATION
  Report Type: 
  Country: None (occurrence: None)
  Receive Date: 20041029
  Receipt Date: 20041019
  Transmission Date: 20050328
  Serious: Yes (Other)
  Sender: FDA-Public Use
  Company Number: JP-BRISTOL-MYERS SQUIBB COMPANY-12735569

PATIENT
  Sex: Female

DRUGS (3)
  1. CISPLATIN [Suspect]
     Indication: OVARIAN GERM CELL ENDODERMAL SINUS TUMOUR STAGE I
  2. BLEOMYCIN SULFATE [Suspect]
     Indication: OVARIAN GERM CELL ENDODERMAL SINUS TUMOUR STAGE I
  3. VINBLASTINE SULFATE [Suspect]
     Indication: OVARIAN GERM CELL ENDODERMAL SINUS TUMOUR STAGE I

REACTIONS (10)
  - COAGULOPATHY [None]
  - FIBRINOLYSIS [None]
  - FOETAL GROWTH RETARDATION [None]
  - HYPERTENSION [None]
  - NORMAL NEWBORN [None]
  - OLIGOHYDRAMNIOS [None]
  - PREGNANCY [None]
  - PREMATURE BABY [None]
  - RENAL IMPAIRMENT [None]
  - THROMBOCYTOPENIA [None]
